FAERS Safety Report 6379552-0 (Version None)
Quarter: 2009Q3

REPORT INFORMATION
  Report Type: 
  Country: None (occurrence: None)
  Receive Date: 20090923
  Receipt Date: 20090918
  Transmission Date: 20100115
  Serious: Yes (Other)
  Sender: FDA-Public Use
  Company Number: SP02518

PATIENT
  Age: 64 Year
  Sex: Female
  Weight: 54.4316 kg

DRUGS (6)
  1. OSMOPREP [Suspect]
     Indication: COLONOSCOPY
     Dosage: (SPLIT DOSE), ORAL
     Route: 048
     Dates: start: 20070806, end: 20070807
  2. TOPROL-XL [Concomitant]
  3. HYDROCHLROOTHIAZIDE [Concomitant]
  4. VYTORIN [Concomitant]
  5. PREMARIN [Concomitant]
  6. ASPIRIN [Concomitant]

REACTIONS (9)
  - ABDOMINAL DISTENSION [None]
  - DIARRHOEA [None]
  - GAIT DISTURBANCE [None]
  - HYPOVOLAEMIA [None]
  - NEPHROPATHY [None]
  - RENAL FAILURE CHRONIC [None]
  - RENAL IMPAIRMENT [None]
  - RENAL INJURY [None]
  - RENAL TUBULAR NECROSIS [None]
